FAERS Safety Report 13302291 (Version 2)
Quarter: 2017Q2

REPORT INFORMATION
  Report Type: Report from Study
  Country: CA (occurrence: CA)
  Receive Date: 20170307
  Receipt Date: 20170524
  Transmission Date: 20170830
  Serious: Yes (Other)
  Sender: FDA-Public Use
  Company Number: CA-AMGEN-CANSL2017032807

PATIENT
  Age: 85 Year
  Sex: Female

DRUGS (11)
  1. CANDESARTAN. [Concomitant]
     Active Substance: CANDESARTAN
     Dosage: 8 MG, QD
  2. CALCIUM [Concomitant]
     Active Substance: CALCIUM
     Dosage: 300 MG, QD
  3. FISH OIL [Concomitant]
     Active Substance: FISH OIL
  4. VAGIFEM [Concomitant]
     Active Substance: ESTRADIOL
  5. RANITIDINE. [Concomitant]
     Active Substance: RANITIDINE
  6. MULTIVITAMINS [Concomitant]
     Active Substance: VITAMINS
     Dosage: UNK UNK, QD
  7. VITAMIN D [Concomitant]
     Active Substance: CHOLECALCIFEROL
     Dosage: 2000 IU, QD
  8. CENTRUM [Concomitant]
     Active Substance: VITAMINS
  9. COD LIVER OIL [Concomitant]
     Active Substance: COD LIVER OIL
  10. PRESERVISION [Concomitant]
     Active Substance: MINERALS\VITAMINS
  11. PROLIA [Suspect]
     Active Substance: DENOSUMAB
     Indication: OSTEOPOROSIS
     Dosage: UNK
     Route: 065
     Dates: start: 201606

REACTIONS (11)
  - Appetite disorder [Unknown]
  - Blepharospasm [Unknown]
  - Eyelids pruritus [Unknown]
  - Macular degeneration [Unknown]
  - Pruritus generalised [Unknown]
  - Rhinorrhoea [Unknown]
  - Muscle twitching [Unknown]
  - Adverse reaction [Unknown]
  - Muscle spasms [Unknown]
  - Wrist fracture [Unknown]
  - Paraesthesia [Unknown]

NARRATIVE: CASE EVENT DATE: 2016
